FAERS Safety Report 22192338 (Version 1)
Quarter: 2023Q2

REPORT INFORMATION
  Report Type: Spontaneous
  Country: US (occurrence: None)
  Receive Date: 20230409
  Receipt Date: 20230409
  Transmission Date: 20230722
  Serious: Yes (unspecified)
  Sender: FDA-Public Use
  Company Number: None

PATIENT
  Age: 52 Year
  Sex: Female
  Weight: 60.75 kg

DRUGS (1)
  1. TERBINAFINE HYDROCHLORIDE [Suspect]
     Active Substance: TERBINAFINE HYDROCHLORIDE
     Indication: Onychomycosis
     Dosage: 1 TABLET DAILY ORAL
     Route: 048
     Dates: start: 20220901, end: 20221112

REACTIONS (5)
  - Lethargy [None]
  - Nausea [None]
  - Headache [None]
  - Ageusia [None]
  - Parosmia [None]

NARRATIVE: CASE EVENT DATE: 20221016
